FAERS Safety Report 8593805-7 (Version None)
Quarter: 2012Q3

REPORT INFORMATION
  Report Type: 
  Country: None (occurrence: None)
  Receive Date: 20120814
  Receipt Date: 20120806
  Transmission Date: 20120928
  Serious: Yes (Death, Other)
  Sender: FDA-Public Use
  Company Number: GB-ROCHE-1099996

PATIENT
  Age: 68 Year
  Sex: Female
  Weight: 88 kg

DRUGS (5)
  1. ASPIRIN [Concomitant]
     Indication: CARDIAC DISORDER
     Route: 048
  2. LISINOPRIL [Concomitant]
     Indication: CARDIAC DISORDER
     Route: 048
  3. PAROXETINE [Concomitant]
     Indication: CARDIAC DISORDER
     Route: 048
  4. BISOPROLOL [Concomitant]
     Indication: CARDIAC DISORDER
     Route: 048
  5. ACTIVASE [Suspect]
     Indication: CEREBROVASCULAR ACCIDENT
     Dates: start: 20120429, end: 20120429

REACTIONS (6)
  - ATAXIA [None]
  - DEPRESSED LEVEL OF CONSCIOUSNESS [None]
  - CEREBRAL HAEMORRHAGE [None]
  - DYSPHAGIA [None]
  - CONVULSION [None]
  - CEREBRAL ARTERY THROMBOSIS [None]
